FAERS Safety Report 14147119 (Version 1)
Quarter: 2017Q4

REPORT INFORMATION
  Report Type: Spontaneous
  Country: US (occurrence: US)
  Receive Date: 20171031
  Receipt Date: 20171031
  Transmission Date: 20180321
  Serious: No
  Sender: FDA-Public Use
  Company Number: US-ROCHE-2003320

PATIENT
  Sex: Male

DRUGS (6)
  1. ASPIRIN. [Concomitant]
     Active Substance: ASPIRIN
     Route: 065
  2. LISINOPRIL. [Concomitant]
     Active Substance: LISINOPRIL
     Route: 048
  3. COLCHICIN [Concomitant]
     Active Substance: COLCHICINE
     Route: 048
  4. CARVEDIL [Concomitant]
     Active Substance: CARVEDILOL
     Route: 048
  5. SYMBICORT [Concomitant]
     Active Substance: BUDESONIDE\FORMOTEROL FUMARATE DIHYDRATE
     Dosage: 160-4.5MCG
     Route: 065
  6. ESBRIET [Suspect]
     Active Substance: PIRFENIDONE
     Indication: IDIOPATHIC PULMONARY FIBROSIS
     Dosage: TAKE THREE TABLETS BY MOUTH THREE TIMES A DAY
     Route: 048

REACTIONS (2)
  - Pruritus [Not Recovered/Not Resolved]
  - Sunburn [Not Recovered/Not Resolved]
